FAERS Safety Report 21952485 (Version 2)
Quarter: 2023Q1

REPORT INFORMATION
  Report Type: Spontaneous
  Country: US (occurrence: US)
  Receive Date: 20230203
  Receipt Date: 20230203
  Transmission Date: 20230418
  Serious: Yes (Other)
  Sender: FDA-Public Use
  Company Number: US-ACERUSPHRM-2023-US-000015

PATIENT
  Sex: 0

DRUGS (1)
  1. TESTOSTERONE [Suspect]
     Active Substance: TESTOSTERONE
     Indication: Product used for unknown indication

REACTIONS (2)
  - Intracranial pressure increased [Unknown]
  - Product use issue [Unknown]
